FAERS Safety Report 24786589 (Version 1)
Quarter: 2024Q4

REPORT INFORMATION
  Report Type: Other
  Country: ES (occurrence: ES)
  Receive Date: 20241230
  Receipt Date: 20241230
  Transmission Date: 20250115
  Serious: Yes (Hospitalization, Other)
  Sender: ANI
  Company Number: ES-ANIPHARMA-015230

PATIENT
  Age: 28 Year
  Sex: Female

DRUGS (2)
  1. LORAZEPAM [Suspect]
     Active Substance: LORAZEPAM
     Indication: Bipolar I disorder
  2. OLANZAPINE [Concomitant]
     Active Substance: OLANZAPINE
     Indication: Bipolar I disorder

REACTIONS (2)
  - Hyperemesis gravidarum [Unknown]
  - Exposure during pregnancy [Unknown]
